FAERS Safety Report 9498314 (Version 2)
Quarter: 2013Q3

REPORT INFORMATION
  Report Type: Spontaneous
  Country: GB (occurrence: GB)
  Receive Date: 20130904
  Receipt Date: 20130923
  Transmission Date: 20140515
  Serious: Yes (Other)
  Sender: FDA-Public Use
  Company Number: GB-TEVA-429156ISR

PATIENT
  Age: 41 Year
  Sex: Female
  Weight: 77 kg

DRUGS (5)
  1. MIRENA [Concomitant]
  2. TERBINAFINE [Suspect]
     Indication: ONYCHOMYCOSIS
     Dosage: 250 MILLIGRAM DAILY;
     Route: 048
     Dates: start: 20130719, end: 20130729
  3. TETRACYCLINE [Concomitant]
  4. TRIMETHOPRIM [Concomitant]
  5. FERROUS FUMARATE [Concomitant]

REACTIONS (2)
  - Haematochezia [Recovered/Resolved]
  - Rectal haemorrhage [Unknown]
